FAERS Safety Report 10023957 (Version 1)
Quarter: 2014Q1

REPORT INFORMATION
  Report Type: Spontaneous
  Country: US (occurrence: None)
  Receive Date: 20140304
  Receipt Date: 20140304
  Transmission Date: 20141002
  Serious: Yes (Death)
  Sender: FDA-Public Use
  Company Number: RB-34987-2011

PATIENT
  Age: 29 Year
  Sex: Male

DRUGS (4)
  1. SUBOXONE 8 MG [Suspect]
     Indication: DRUG DEPENDENCE
     Dosage: 8 MG SUBOXONE FILM SUBLINGUAL
     Route: 060
     Dates: start: 20110309, end: 20111117
  2. BUPRENORPHINE [Suspect]
     Indication: DRUG DEPENDENCE
     Dosage: THE DRUG VARIED BETWEEN 2 MG TWICE A DAY AND 2 MG ONCE A DAY SUBLINGUAL), ( 2 MG SUBLINGUAL)
     Route: 060
     Dates: start: 20111118, end: 2013
  3. KLONOPIN ( UNKNOWN) [Concomitant]
  4. PROPRANOLOL [Concomitant]

REACTIONS (5)
  - Drug dependence [None]
  - Overdose [None]
  - Wrong technique in drug usage process [None]
  - Abdominal pain upper [None]
  - Constipation [None]
